FAERS Safety Report 9104956 (Version 3)
Quarter: 2013Q4

REPORT INFORMATION
  Report Type: Spontaneous
  Country: GB (occurrence: GB)
  Receive Date: 20130219
  Receipt Date: 20131028
  Transmission Date: 20140711
  Serious: Yes (Death, Other)
  Sender: FDA-Public Use
  Company Number: GB-JNJFOC-20130208600

PATIENT
  Age: 52 Year
  Sex: Female

DRUGS (9)
  1. REOPRO [Suspect]
     Indication: PRODUCT USED FOR UNKNOWN INDICATION
     Route: 022
  2. EFFIENT [Suspect]
     Indication: STENT PLACEMENT
     Dosage: 60 MG IMMEDIATELY
     Dates: start: 20130118, end: 20130118
  3. EFFIENT [Suspect]
     Indication: STENT PLACEMENT
     Dosage: MAINTENACE DOSE
     Dates: start: 20130118
  4. EFFIENT [Suspect]
     Indication: ACUTE MYOCARDIAL INFARCTION
     Dosage: MAINTENACE DOSE
     Dates: start: 20130118
  5. EFFIENT [Suspect]
     Indication: ACUTE MYOCARDIAL INFARCTION
     Dosage: 60 MG IMMEDIATELY
     Dates: start: 20130118, end: 20130118
  6. EFFIENT [Suspect]
     Indication: PERCUTANEOUS CORONARY INTERVENTION
     Dosage: 60 MG IMMEDIATELY
     Dates: start: 20130118, end: 20130118
  7. EFFIENT [Suspect]
     Indication: PERCUTANEOUS CORONARY INTERVENTION
     Dosage: MAINTENACE DOSE
     Dates: start: 20130118
  8. ASPIRIN [Suspect]
     Indication: PRODUCT USED FOR UNKNOWN INDICATION
     Route: 065
  9. HEPARIN SODIUM [Suspect]
     Indication: PRODUCT USED FOR UNKNOWN INDICATION
     Route: 042

REACTIONS (3)
  - Cerebral haemorrhage [Fatal]
  - Coronary artery thrombosis [Unknown]
  - Haemodynamic instability [Unknown]
